FAERS Safety Report 9398522 (Version 2)
Quarter: 2013Q3

REPORT INFORMATION
  Report Type: Spontaneous
  Country: US (occurrence: US)
  Receive Date: 20130712
  Receipt Date: 20130725
  Transmission Date: 20140515
  Serious: Yes (Hospitalization)
  Sender: FDA-Public Use
  Company Number: US-FOUGERA-2013FO000204

PATIENT
  Sex: Male

DRUGS (1)
  1. VITAMIN A AND D OINTMENT [Suspect]
     Indication: DECUBITUS ULCER
     Route: 061

REACTIONS (1)
  - No adverse event [Not Recovered/Not Resolved]
